FAERS Safety Report 8904067 (Version 1)
Quarter: 2012Q4

REPORT INFORMATION
  Report Type: 
  Country: US (occurrence: US)
  Receive Date: 20121112
  Receipt Date: 20121112
  Transmission Date: 20130627
  Serious: No
  Sender: FDA-Public Use
  Company Number: US-ASTRAZENECA-2012SE81196

PATIENT
  Age: 66 Year
  Sex: Female
  Weight: 66.7 kg

DRUGS (5)
  1. SEROQUEL XR [Suspect]
     Indication: DEPRESSION
     Route: 048
     Dates: start: 2010, end: 201203
  2. SEROQUEL XR [Suspect]
     Indication: DEPRESSION
     Route: 048
     Dates: start: 201203, end: 2012
  3. SEROQUEL XR [Suspect]
     Indication: DEPRESSION
     Route: 048
     Dates: start: 2012
  4. TOPROL XL [Suspect]
     Route: 048
     Dates: start: 2009
  5. ANTIDEPRESSANT [Concomitant]

REACTIONS (4)
  - Crying [Recovered/Resolved]
  - Insomnia [Recovered/Resolved]
  - Drug ineffective [Unknown]
  - Intentional drug misuse [Unknown]
